FAERS Safety Report 4409751-6 (Version None)
Quarter: 2004Q3

REPORT INFORMATION
  Report Type: 
  Country: None (occurrence: None)
  Receive Date: 20040723
  Receipt Date: 20040713
  Transmission Date: 20050211
  Serious: Yes (Other)
  Sender: FDA-Public Use
  Company Number: US-JNJFOC-20040703622

PATIENT
  Age: 70 Year
  Sex: Female
  Weight: 113.3993 kg

DRUGS (2)
  1. DOXIL (DOXORUBICIN HYDROCHLORIDE) LIPOSOME INJECTION [Suspect]
     Indication: BREAST CANCER
     Dosage: 40 MG/M2, 1 IN 21 DAY
  2. HERCEPTIN [Suspect]
     Indication: BREAST CANCER
     Dosage: DOSE UNKNOWN, X6 CYCLES

REACTIONS (6)
  - BREAST CANCER [None]
  - CARDIOMEGALY [None]
  - DYSPNOEA [None]
  - EJECTION FRACTION DECREASED [None]
  - MALIGNANT NEOPLASM PROGRESSION [None]
  - PULMONARY HYPERTENSION [None]
